FAERS Safety Report 8779974 (Version 1)
Quarter: 2012Q4

REPORT INFORMATION
  Report Type: Spontaneous
  Country: US (occurrence: None)
  Receive Date: 20120831
  Receipt Date: 20120831
  Transmission Date: 20130627
  Serious: Yes (Other)
  Sender: FDA-Public Use
  Company Number: None

PATIENT
  Age: 87 Year
  Sex: Female
  Weight: 58.97 kg

DRUGS (5)
  1. FENTANYL [Suspect]
     Indication: METASTATIC BREAST CANCER
     Route: 062
     Dates: start: 20120730, end: 20120806
  2. FENTANYL [Suspect]
     Indication: CHRONIC PAIN
     Route: 062
     Dates: start: 20120730, end: 20120806
  3. FENTANYL [Suspect]
     Route: 062
     Dates: start: 20120730, end: 20120806
  4. FENTANYL [Suspect]
     Route: 062
     Dates: start: 20120730, end: 20120806
  5. FENTANYL PATCH [Suspect]

REACTIONS (3)
  - Drug withdrawal syndrome [None]
  - Wrong technique in drug usage process [None]
  - Product quality issue [None]
